FAERS Safety Report 20879579 (Version 2)
Quarter: 2025Q4

REPORT INFORMATION
  Report Type: Spontaneous
  Country: KR (occurrence: KR)
  Receive Date: 20220526
  Receipt Date: 20251031
  Transmission Date: 20260117
  Serious: Yes (Other)
  Sender: MYLAN
  Company Number: KR-PFIZER INC-202200740800

PATIENT
  Age: 60 Year
  Sex: Male

DRUGS (2)
  1. NEURONTIN [Suspect]
     Active Substance: GABAPENTIN
     Indication: Myelitis
     Dosage: 900 MILLIGRAM, QD
  2. NEURONTIN [Suspect]
     Active Substance: GABAPENTIN
     Dosage: 600 MILLIGRAM, QD

REACTIONS (5)
  - Meningitis [Unknown]
  - Epilepsy [Unknown]
  - Paraesthesia [Unknown]
  - Muscle spasms [Unknown]
  - Off label use [Unknown]
